FAERS Safety Report 6461740-6 (Version None)
Quarter: 2009Q4

REPORT INFORMATION
  Report Type: 
  Country: None (occurrence: None)
  Receive Date: 20091130
  Receipt Date: 20091119
  Transmission Date: 20100525
  Serious: Yes (Hospitalization, Other)
  Sender: FDA-Public Use
  Company Number: BR-SANOFI-AVENTIS-2009SA003623

PATIENT
  Sex: Female
  Weight: 68 kg

DRUGS (13)
  1. LANTUS [Suspect]
     Route: 058
  2. ALL OTHER THERAPEUTIC PRODUCTS [Suspect]
     Dates: start: 20080101, end: 20080101
  3. HUMALOG [Concomitant]
     Dosage: ACCORDING TO GLYCEMIA
     Route: 058
  4. CEFAMOX [Concomitant]
     Indication: INFECTION
     Route: 048
  5. LASIX [Concomitant]
     Dosage: 1/2 TAB
     Route: 048
  6. CLOPIDOGREL [Concomitant]
     Route: 048
  7. VITAMIN B COMPLEX CAP [Concomitant]
     Route: 048
  8. MICARDIS [Concomitant]
     Indication: BLOOD PRESSURE
     Route: 048
  9. CILOSTAZOL [Concomitant]
     Route: 048
  10. NUCLEO C.M.P. [Concomitant]
     Dosage: 2 TABLETS DAILY
     Route: 048
  11. SIMVASTATIN [Concomitant]
     Route: 048
  12. SELOKEN [Concomitant]
     Route: 048
  13. LEXOTAN [Concomitant]
     Route: 048

REACTIONS (6)
  - COMA [None]
  - HYPERGLYCAEMIA [None]
  - HYPERHIDROSIS [None]
  - HYPOGLYCAEMIA [None]
  - PNEUMONIA [None]
  - SKIN ULCER [None]
